FAERS Safety Report 5874898-4 (Version None)
Quarter: 2008Q3

REPORT INFORMATION
  Report Type: 
  Country: None (occurrence: None)
  Receive Date: 20080904
  Receipt Date: 20080826
  Transmission Date: 20090109
  Serious: Yes (Hospitalization)
  Sender: FDA-Public Use
  Company Number: 2008-182716-NL

PATIENT
  Age: 37 Year
  Sex: Female

DRUGS (1)
  1. ETONOGESTREL [Suspect]
     Dosage: DF SUBCUTANEOUS
     Route: 058
     Dates: start: 20060101

REACTIONS (3)
  - DRUG EXPOSURE DURING PREGNANCY [None]
  - OVARIAN TORSION [None]
  - PREGNANCY WITH IMPLANT CONTRACEPTIVE [None]
